FAERS Safety Report 21533780 (Version 1)
Quarter: 2022Q4

REPORT INFORMATION
  Report Type: Spontaneous
  Country: US (occurrence: US)
  Receive Date: 20221101
  Receipt Date: 20221101
  Transmission Date: 20230113
  Serious: No
  Sender: FDA-Public Use
  Company Number: US-LEO Pharma-346373

PATIENT
  Sex: Female

DRUGS (1)
  1. ADBRY [Suspect]
     Active Substance: TRALOKINUMAB-LDRM
     Indication: Dermatitis atopic
     Route: 058
     Dates: start: 20220505

REACTIONS (6)
  - Rash [Unknown]
  - Cutaneous symptom [Unknown]
  - Pruritus [Unknown]
  - Drug ineffective [Unknown]
  - Condition aggravated [Unknown]
  - Rash [Unknown]
